FAERS Safety Report 9038271 (Version 1)
Quarter: 2013Q1

REPORT INFORMATION
  Report Type: Spontaneous
  Country: US (occurrence: US)
  Receive Date: 20130129
  Receipt Date: 20130129
  Transmission Date: 20140127
  Serious: No
  Sender: FDA-Public Use
  Company Number: US-GLAXOSMITHKLINE-A1004790A

PATIENT
  Sex: Female

DRUGS (2)
  1. BUPROPION [Suspect]
     Indication: DEPRESSION
     Route: 048
  2. BUSPAR [Concomitant]
     Indication: DEPRESSION

REACTIONS (6)
  - Depression [Unknown]
  - Feeling of despair [Unknown]
  - Fatigue [Unknown]
  - Confusional state [Unknown]
  - Ill-defined disorder [Unknown]
  - Drug ineffective [Unknown]
